FAERS Safety Report 13102973 (Version 1)
Quarter: 2017Q1

REPORT INFORMATION
  Report Type: Spontaneous
  Country: US (occurrence: US)
  Receive Date: 20170110
  Receipt Date: 20170110
  Transmission Date: 20170428
  Serious: Yes (Other)
  Sender: FDA-Public Use
  Company Number: US-SA-2017SA002576

PATIENT
  Age: 73 Year
  Sex: Female

DRUGS (2)
  1. PRALUENT [Suspect]
     Active Substance: ALIROCUMAB
     Indication: HYPERLIPIDAEMIA
     Dosage: DOSE:150 MILLIGRAM(S)/MILLILITRE
     Route: 058
     Dates: start: 20160902, end: 20161115
  2. ALIROCUMAB PREFILLED PEN [Concomitant]
     Active Substance: ALIROCUMAB

REACTIONS (1)
  - Vascular graft occlusion [Unknown]

NARRATIVE: CASE EVENT DATE: 2016
